FAERS Safety Report 19355407 (Version 1)
Quarter: 2021Q2

REPORT INFORMATION
  Report Type: Report from Study
  Country: US (occurrence: US)
  Receive Date: 20210531
  Receipt Date: 20210531
  Transmission Date: 20210717
  Serious: No
  Sender: FDA-Public Use
  Company Number: NVSC2021US116056

PATIENT
  Age: 80 Year
  Sex: Male

DRUGS (3)
  1. CARVEDIOL [Concomitant]
     Active Substance: CARVEDILOL
     Indication: PRODUCT USED FOR UNKNOWN INDICATION
     Dosage: UNK
     Route: 065
  2. ENTRESTO [Suspect]
     Active Substance: SACUBITRIL\VALSARTAN
     Dosage: 0.5 DF, BID (12 MG/13.5)
     Route: 048
     Dates: start: 20210518
  3. ENTRESTO [Suspect]
     Active Substance: SACUBITRIL\VALSARTAN
     Indication: CARDIAC FAILURE CONGESTIVE
     Dosage: 1 DF, BID
     Route: 048
     Dates: start: 20210329

REACTIONS (5)
  - Weight increased [Recovering/Resolving]
  - Dizziness [Recovering/Resolving]
  - Underdose [Unknown]
  - Wrong technique in product usage process [Unknown]
  - Hypotension [Recovering/Resolving]

NARRATIVE: CASE EVENT DATE: 20210329
